FAERS Safety Report 11142422 (Version 1)
Quarter: 2015Q2

REPORT INFORMATION
  Report Type: Spontaneous
  Country: US (occurrence: None)
  Receive Date: 20150526
  Receipt Date: 20150526
  Transmission Date: 20150821
  Serious: Yes (Hospitalization)
  Sender: FDA-Public Use
  Company Number: None

PATIENT
  Age: 68 Year
  Sex: Male
  Weight: 99.79 kg

DRUGS (8)
  1. ACIPHEX [Concomitant]
     Active Substance: RABEPRAZOLE SODIUM
  2. KLONOPIN [Concomitant]
     Active Substance: CLONAZEPAM
  3. CADURA [Concomitant]
  4. RAPIFLOW [Concomitant]
  5. SUBOXONE [Suspect]
     Active Substance: BUPRENORPHINE HYDROCHLORIDE\NALOXONE HYDROCHLORIDE
     Indication: DRUG DEPENDENCE
     Route: 060
     Dates: start: 20100731, end: 20150430
  6. CIALAS [Concomitant]
  7. ZANTAC [Concomitant]
     Active Substance: RANITIDINE HYDROCHLORIDE
  8. SAW PAWMENTO [Concomitant]

REACTIONS (3)
  - Pain [None]
  - Asthenia [None]
  - Drug withdrawal syndrome [None]

NARRATIVE: CASE EVENT DATE: 20150522
